FAERS Safety Report 4279192-3 (Version None)
Quarter: 2004Q1

REPORT INFORMATION
  Report Type: 
  Country: None (occurrence: None)
  Receive Date: 20040126
  Receipt Date: 20040126
  Transmission Date: 20041129
  Serious: Yes (Other)
  Sender: FDA-Public Use
  Company Number: None

PATIENT
  Sex: Female

DRUGS (4)
  1. PAROXETINE  20MG  TORPHARM(APOTEK) [Suspect]
     Dosage: 2 TABS  HS
     Dates: start: 20040109, end: 20040116
  2. TOPROL-XL [Concomitant]
  3. PLAVIX [Concomitant]
  4. LESCOL XL [Concomitant]

REACTIONS (3)
  - DIZZINESS [None]
  - HEART RATE INCREASED [None]
  - PHARMACEUTICAL PRODUCT COMPLAINT [None]
